FAERS Safety Report 4991372-8 (Version None)
Quarter: 2006Q2

REPORT INFORMATION
  Report Type: 
  Country: None (occurrence: None)
  Receive Date: 20060501
  Receipt Date: 20060412
  Transmission Date: 20061013
  Serious: Yes (Other)
  Sender: FDA-Public Use
  Company Number: 200611599GDS

PATIENT
  Sex: Female

DRUGS (4)
  1. PROCARDIA [Suspect]
     Indication: ARTERIOSPASM CORONARY
     Dosage: SEE IMAGE
     Dates: start: 19910101
  2. PROCARDIA [Suspect]
     Indication: HYPERTENSION
     Dosage: SEE IMAGE
     Dates: start: 19910101
  3. NIFEDIPINE [Suspect]
     Indication: ARTERIOSPASM CORONARY
  4. NIFEDIPINE [Suspect]
     Indication: HYPERTENSION

REACTIONS (5)
  - ARTERIOSPASM CORONARY [None]
  - BALANCE DISORDER [None]
  - DIZZINESS [None]
  - OEDEMA PERIPHERAL [None]
  - PHARMACEUTICAL PRODUCT COMPLAINT [None]
